FAERS Safety Report 6439792-9 (Version None)
Quarter: 2009Q4

REPORT INFORMATION
  Report Type: 
  Country: None (occurrence: None)
  Receive Date: 20091113
  Receipt Date: 20091103
  Transmission Date: 20100525
  Serious: Yes (Hospitalization)
  Sender: FDA-Public Use
  Company Number: DE-MERCK-90100236

PATIENT
  Age: 48 Year
  Sex: Male
  Weight: 86 kg

DRUGS (2)
  1. MEVACOR [Suspect]
     Indication: HYPERLIPIDAEMIA
     Route: 048
     Dates: start: 19900510, end: 19900706
  2. NIFEDIPINE [Concomitant]
     Route: 065

REACTIONS (2)
  - JAUNDICE CHOLESTATIC [None]
  - LIVER INJURY [None]
